FAERS Safety Report 9878184 (Version 2)
Quarter: 2014Q1

REPORT INFORMATION
  Report Type: Spontaneous
  Country: US (occurrence: US)
  Receive Date: 20140206
  Receipt Date: 20140213
  Transmission Date: 20141002
  Serious: Yes (Other)
  Sender: FDA-Public Use
  Company Number: US-PFIZER INC-2014030399

PATIENT
  Age: 70 Year
  Sex: Male
  Weight: 77.1 kg

DRUGS (9)
  1. CENTRUM SILVER ADULTS 50+ [Suspect]
     Indication: VITAMIN SUPPLEMENTATION
     Dosage: UNK,1X/DAY
     Route: 048
     Dates: end: 20140121
  2. ALTACE [Suspect]
     Indication: BLOOD PRESSURE ABNORMAL
     Dosage: 5 MG, 3X/DAY
  3. ASPIRIN [Concomitant]
     Dosage: 81 MG, DAILY
  4. COREG [Concomitant]
     Dosage: 12.5 MG, 2X/DAY
  5. ALDACTONE [Concomitant]
     Dosage: 25 MG, DAILY
  6. SYNTHROID [Concomitant]
     Dosage: 112 UG, DAILY
  7. PRADAXA [Concomitant]
     Indication: ANTICOAGULANT THERAPY
     Dosage: 150 MG, 2X/DAY
  8. LIPITOR [Concomitant]
     Dosage: 40 MG, DAILY
  9. FUROSEMIDE [Concomitant]
     Indication: DIURETIC THERAPY
     Dosage: 20 MG, 2X/DAY

REACTIONS (3)
  - Blood pressure increased [Recovered/Resolved]
  - Product quality issue [Recovered/Resolved]
  - Dyspepsia [Recovered/Resolved]
